FAERS Safety Report 7041908-0 (Version None)
Quarter: 2010Q4

REPORT INFORMATION
  Report Type: 
  Country: None (occurrence: None)
  Receive Date: 20101013
  Receipt Date: 20100423
  Transmission Date: 20110411
  Serious: No
  Sender: FDA-Public Use
  Company Number: US-ASTRAZENECA-2010SE18456

PATIENT
  Age: 64 Year
  Sex: Female
  Weight: 64.4 kg

DRUGS (1)
  1. SYMBICORT [Suspect]
     Dosage: 2 PUFFS
     Route: 055
     Dates: start: 20100301, end: 20100301

REACTIONS (2)
  - APHONIA [None]
  - DYSPHONIA [None]
